FAERS Safety Report 9190322 (Version 3)
Quarter: 2013Q3

REPORT INFORMATION
  Report Type: Spontaneous
  Country: US (occurrence: US)
  Receive Date: 20130326
  Receipt Date: 20130906
  Transmission Date: 20140515
  Serious: Yes (Hospitalization)
  Sender: FDA-Public Use
  Company Number: US-BAYER-2013-036804

PATIENT
  Age: 30 Year
  Sex: Female
  Weight: 115.9 kg

DRUGS (6)
  1. YAZ [Suspect]
     Dosage: UNK
     Dates: start: 200702
  2. RANITIDINE [Concomitant]
  3. A/B OTIC [Concomitant]
     Dosage: 15 ML, USE IN AFFECTED EARS TID
     Dates: start: 20070404
  4. NASONEX [Concomitant]
     Dosage: INHALE ONE SPRAY IN EACH NOSTRIL ONCE DAILY
     Route: 045
     Dates: start: 20070404
  5. CELEBREX [Concomitant]
     Dosage: 200 MG, 1 CAPSULE DAILY
     Route: 048
     Dates: start: 20070319
  6. KETOPROFEN [Concomitant]
     Dosage: 75 MG, 1 CAPSULE TID WITH FOOD
     Route: 048
     Dates: start: 20070314

REACTIONS (4)
  - Deep vein thrombosis [None]
  - Pain [None]
  - Injury [None]
  - Pain [None]
